FAERS Safety Report 5499327-4 (Version None)
Quarter: 2007Q4

REPORT INFORMATION
  Report Type: 
  Country: None (occurrence: None)
  Receive Date: 20071024
  Receipt Date: 20071009
  Transmission Date: 20080405
  Serious: Yes (Hospitalization)
  Sender: FDA-Public Use
  Company Number: 162535ISR

PATIENT
  Age: 84 Year
  Sex: Female

DRUGS (1)
  1. FUROSEMIDE [Suspect]
     Dosage: 60 MG (60 MG, 1 IN 1 D)
     Route: 048
     Dates: end: 20070912

REACTIONS (2)
  - HYPOKALAEMIA [None]
  - RENAL FAILURE ACUTE [None]
